FAERS Safety Report 10471477 (Version 1)
Quarter: 2014Q3

REPORT INFORMATION
  Report Type: Spontaneous
  Country: US (occurrence: US)
  Receive Date: 20140923
  Receipt Date: 20140923
  Transmission Date: 20150326
  Serious: No
  Sender: FDA-Public Use
  Company Number: US-009507513-1409USA011159

PATIENT
  Sex: Male

DRUGS (3)
  1. DR. SCHOLLS CLEAR AWAY WART REMOVER [Suspect]
     Active Substance: SALICYLIC ACID
     Dosage: UNK
  2. DR. SCHOLLS CLEAR AWAY WART REMOVER [Suspect]
     Active Substance: SALICYLIC ACID
     Dosage: UNK
     Route: 061
  3. DR. SCHOLLS CLEAR AWAY WART REMOVER [Suspect]
     Active Substance: SALICYLIC ACID
     Indication: SKIN PAPILLOMA
     Dosage: UNK, UNKNOWN
     Route: 061
     Dates: start: 201408

REACTIONS (2)
  - Drug administration error [Unknown]
  - Drug ineffective [Unknown]

NARRATIVE: CASE EVENT DATE: 2014
